FAERS Safety Report 7562282-7 (Version None)
Quarter: 2011Q2

REPORT INFORMATION
  Report Type: 
  Country: None (occurrence: None)
  Receive Date: 20110622
  Receipt Date: 20110608
  Transmission Date: 20111010
  Serious: Yes (Other)
  Sender: FDA-Public Use
  Company Number: US-ELI_LILLY_AND_COMPANY-US201105001645

PATIENT
  Sex: Female
  Weight: 66 kg

DRUGS (10)
  1. ACYCLOVIR [Concomitant]
     Dosage: UNK, UNKNOWN
     Route: 065
  2. MARINOL [Concomitant]
  3. PREDNISONE [Concomitant]
     Dosage: UNK, UNKNOWN
     Route: 065
  4. OXYCODONE HCL [Concomitant]
     Dosage: UNK, UNKNOWN
     Route: 065
  5. LORAZEPAM [Concomitant]
     Dosage: UNK, UNKNOWN
     Route: 065
  6. GEMZAR [Suspect]
     Indication: HODGKIN'S DISEASE
     Dosage: UNK, UNKNOWN
     Route: 065
     Dates: start: 20100721
  7. DAPSONE [Concomitant]
     Dosage: UNK, UNKNOWN
     Route: 065
  8. HYDROCORTISONE [Concomitant]
     Dosage: UNK, UNKNOWN
     Route: 065
  9. LOVENOX [Concomitant]
  10. POTASSIUM CHLORIDE [Concomitant]
     Dosage: UNK, UNKNOWN
     Route: 065

REACTIONS (6)
  - NEUTROPHIL COUNT ABNORMAL [None]
  - HAEMOGLOBIN ABNORMAL [None]
  - WHITE BLOOD CELL COUNT ABNORMAL [None]
  - PLATELET COUNT ABNORMAL [None]
  - OFF LABEL USE [None]
  - NEOPLASM PROGRESSION [None]
